FAERS Safety Report 20671926 (Version 1)
Quarter: 2022Q2

REPORT INFORMATION
  Report Type: Report from Study
  Country: EG (occurrence: EG)
  Receive Date: 20220405
  Receipt Date: 20220405
  Transmission Date: 20220720
  Serious: Yes (Other)
  Sender: FDA-Public Use
  Company Number: EG-NOVARTISPH-NVSC2021EG177032

PATIENT
  Sex: Female

DRUGS (6)
  1. GILENYA [Suspect]
     Active Substance: FINGOLIMOD HYDROCHLORIDE
     Indication: Multiple sclerosis
     Dosage: 0.5 MG, QD
     Route: 048
     Dates: start: 2019
  2. GILENYA [Suspect]
     Active Substance: FINGOLIMOD HYDROCHLORIDE
     Dosage: 0.5MG QD
     Route: 048
     Dates: start: 2020
  3. OXALEPTAL [Concomitant]
     Indication: Product used for unknown indication
     Dosage: 1 DF, QD (ONCE DAILY FOR THE FIRST FIVE DAYS THEN PROCEEDED WITH TWICE DAILY)
     Route: 065
  4. CARBAPEX [Concomitant]
     Indication: Sedative therapy
     Dosage: UNK, QD
     Route: 065
     Dates: start: 202202
  5. PK-MERZ [Concomitant]
     Active Substance: AMANTADINE
     Indication: Sedative therapy
     Dosage: HALF TAB TWICE DAILY
     Route: 065
     Dates: start: 20220315
  6. PROZAC [Concomitant]
     Active Substance: FLUOXETINE HYDROCHLORIDE
     Indication: Sedative therapy
     Dosage: UNK
     Route: 065
     Dates: start: 202202

REACTIONS (9)
  - Movement disorder [Not Recovered/Not Resolved]
  - Memory impairment [Not Recovered/Not Resolved]
  - Multiple sclerosis [Unknown]
  - Multiple sclerosis relapse [Recovered/Resolved]
  - Headache [Not Recovered/Not Resolved]
  - White blood cell count increased [Recovered/Resolved]
  - Ill-defined disorder [Recovered/Resolved]
  - Hypoaesthesia [Recovered/Resolved]
  - Vision blurred [Recovered/Resolved]

NARRATIVE: CASE EVENT DATE: 20200101
